FAERS Safety Report 13706810 (Version 3)
Quarter: 2019Q4

REPORT INFORMATION
  Report Type: Spontaneous
  Country: US (occurrence: US)
  Receive Date: 20170630
  Receipt Date: 20191021
  Transmission Date: 20200122
  Serious: No
  Sender: FDA-Public Use
  Company Number: US-JNJFOC-20170616728

PATIENT
  Sex: Male

DRUGS (2)
  1. RISPERIDONE. [Suspect]
     Active Substance: RISPERIDONE
     Indication: PRODUCT USED FOR UNKNOWN INDICATION
     Dosage: AT VARYING DOE OF 0.25 MG, 0.5 MG, 1 MG, 2 MG AND 3 MG.
     Route: 048
     Dates: start: 20150908, end: 20170126
  2. RISPERDAL [Suspect]
     Active Substance: RISPERIDONE
     Indication: PRODUCT USED FOR UNKNOWN INDICATION
     Dosage: VARYING DOSES OF 0.25 MG 1 MG, 3MG WITH VARYING FREQUENCIES.
     Route: 048
     Dates: start: 20150908, end: 20170126

REACTIONS (2)
  - Emotional distress [Unknown]
  - Gynaecomastia [Unknown]
